FAERS Safety Report 9051871 (Version 2)
Quarter: 2013Q1

REPORT INFORMATION
  Report Type: Spontaneous
  Country: JP (occurrence: JP)
  Receive Date: 20130207
  Receipt Date: 20130225
  Transmission Date: 20140127
  Serious: Yes (Hospitalization)
  Sender: FDA-Public Use
  Company Number: JP-AMGEN-JPNSP2013006793

PATIENT
  Age: 73 Year
  Sex: Female
  Weight: 43 kg

DRUGS (12)
  1. RANMARK [Suspect]
     Indication: METASTASES TO BONE
     Dosage: 120 MG, UNK
     Route: 058
     Dates: start: 20121105, end: 20121204
  2. ALFAROL [Concomitant]
     Dosage: UNK
     Route: 065
  3. ASPARA-CA [Concomitant]
     Dosage: UNK
     Route: 065
  4. D-ALFA [Concomitant]
     Indication: PROPHYLAXIS
     Route: 048
     Dates: start: 20121105
  5. CALCIUM L-ASPARTATE [Concomitant]
     Indication: PROPHYLAXIS
     Route: 048
     Dates: start: 20121105
  6. OXYCONTIN [Concomitant]
     Indication: CANCER PAIN
     Dosage: 30/TIME
     Route: 048
     Dates: start: 20110624
  7. OXYCONTIN [Concomitant]
     Dosage: 30/TIME
     Route: 048
     Dates: start: 20110624
  8. TARCEVA [Concomitant]
     Indication: LUNG NEOPLASM MALIGNANT
     Route: 048
     Dates: start: 20110720
  9. LANSOPRAZOLE [Concomitant]
     Indication: GASTRIC ULCER
     Route: 048
     Dates: start: 20110624
  10. NOVAMIN [Concomitant]
     Indication: PROPHYLAXIS OF NAUSEA AND VOMITING
     Route: 048
     Dates: start: 20110624, end: 201111
  11. SENNOSIDE [Concomitant]
     Indication: CONSTIPATION
     Route: 048
     Dates: start: 20110624
  12. OXINORM [Concomitant]
     Indication: CANCER PAIN
     Route: 048
     Dates: start: 20110624

REACTIONS (2)
  - Electrocardiogram QT prolonged [Recovered/Resolved]
  - Hypocalcaemia [Recovered/Resolved]
